FAERS Safety Report 8561459-1 (Version None)
Quarter: 2012Q3

REPORT INFORMATION
  Report Type: 
  Country: None (occurrence: None)
  Receive Date: 20120802
  Receipt Date: 20120722
  Transmission Date: 20120928
  Serious: Yes (Other)
  Sender: FDA-Public Use
  Company Number: US-CELGENEUS-163-21880-12072411

PATIENT
  Sex: Male

DRUGS (2)
  1. REVLIMID [Suspect]
     Indication: MULTIPLE MYELOMA
     Dosage: 25 MILLIGRAM
     Route: 048
     Dates: start: 20081101
  2. LASIX [Concomitant]
     Route: 065

REACTIONS (9)
  - LOSS OF CONSCIOUSNESS [None]
  - BLOOD TEST ABNORMAL [None]
  - GAIT DISTURBANCE [None]
  - DEHYDRATION [None]
  - ORTHOSTATIC HYPOTENSION [None]
  - AUTONOMIC NEUROPATHY [None]
  - ATRIAL FIBRILLATION [None]
  - CONVULSION [None]
  - FALL [None]
